FAERS Safety Report 10157944 (Version 1)
Quarter: 2014Q2

REPORT INFORMATION
  Report Type: Spontaneous
  Country: US (occurrence: US)
  Receive Date: 20140507
  Receipt Date: 20140507
  Transmission Date: 20141212
  Serious: No
  Sender: FDA-Public Use
  Company Number: US-BAYER-2014-066202

PATIENT
  Sex: Male

DRUGS (3)
  1. XOFIGO [Suspect]
     Indication: HORMONE-REFRACTORY PROSTATE CANCER
     Route: 042
  2. XOFIGO [Suspect]
     Indication: METASTASES TO BONE
  3. PERCOCET [Concomitant]

REACTIONS (1)
  - Nausea [None]
